FAERS Safety Report 18474329 (Version 1)
Quarter: 2020Q4

REPORT INFORMATION
  Report Type: Report from Study
  Country: CA (occurrence: CA)
  Receive Date: 20201106
  Receipt Date: 20201106
  Transmission Date: 20210114
  Serious: Yes (Other)
  Sender: FDA-Public Use
  Company Number: CA-HLS-202006576

PATIENT
  Age: 31 Year
  Sex: Male

DRUGS (8)
  1. ESCITALOPRAM [Concomitant]
     Active Substance: ESCITALOPRAM OXALATE
     Indication: DEPRESSION
     Route: 065
  2. LITHIUM. [Concomitant]
     Active Substance: LITHIUM
     Indication: SCHIZOAFFECTIVE DISORDER
     Dosage: QHS?LEVEL 0.8 01-JUN-2020
     Route: 065
  3. ARIPIPRAZOLE. [Concomitant]
     Active Substance: ARIPIPRAZOLE
     Indication: OBSESSIVE-COMPULSIVE SYMPTOM
     Route: 065
     Dates: end: 202005
  4. CLOZARIL [Suspect]
     Active Substance: CLOZAPINE
     Indication: SCHIZOAFFECTIVE DISORDER
     Dosage: QHS, DOSE INCREASE SPRING 2020
     Route: 065
  5. CLOZARIL [Suspect]
     Active Substance: CLOZAPINE
     Indication: SCHIZOAFFECTIVE DISORDER
     Route: 048
     Dates: start: 20170112
  6. LEVOTHYROXINE. [Concomitant]
     Active Substance: LEVOTHYROXINE
     Indication: HYPOTHYROIDISM
     Route: 065
  7. ESCITALOPRAM [Concomitant]
     Active Substance: ESCITALOPRAM OXALATE
     Indication: DEPRESSION
     Dosage: PRIOR TRIAL
     Route: 065
     Dates: start: 2014, end: 2015
  8. PREGABALIN. [Concomitant]
     Active Substance: PREGABALIN
     Indication: ANXIETY
     Route: 065
     Dates: start: 201905, end: 201907

REACTIONS (6)
  - Hypothyroidism [Unknown]
  - Obsessive thoughts [Unknown]
  - Constipation [Unknown]
  - Suicidal ideation [Unknown]
  - Paranoia [Unknown]
  - Fatigue [Unknown]
